FAERS Safety Report 8990376 (Version 3)
Quarter: 2013Q1

REPORT INFORMATION
  Report Type: Spontaneous
  Country: CZ (occurrence: CZ)
  Receive Date: 20121228
  Receipt Date: 20130122
  Transmission Date: 20140127
  Serious: Yes (Death)
  Sender: FDA-Public Use
  Company Number: CZ-ELI_LILLY_AND_COMPANY-CZ201212006693

PATIENT
  Age: 68 Year
  Sex: Female

DRUGS (9)
  1. FORSTEO [Suspect]
     Indication: OSTEOPOROSIS POSTMENOPAUSAL
     Dosage: 20 UG, QD
     Route: 058
     Dates: start: 20110421
  2. GLUCOCORTICOIDS [Concomitant]
  3. PREDNISONE [Concomitant]
     Indication: RHEUMATOID ARTHRITIS
     Dosage: 5 MG, QD
  4. IBUPROFEN [Concomitant]
  5. DICLOFENAC [Concomitant]
  6. NIMESULID [Concomitant]
  7. DIHYDROERGOTOXINE [Concomitant]
  8. PANCREATIN [Concomitant]
  9. RANITIDINE [Concomitant]

REACTIONS (1)
  - Death [Fatal]
